FAERS Safety Report 13941458 (Version 1)
Quarter: 2017Q3

REPORT INFORMATION
  Report Type: Spontaneous
  Country: FR (occurrence: FR)
  Receive Date: 20170906
  Receipt Date: 20170906
  Transmission Date: 20171127
  Serious: Yes (Other)
  Sender: FDA-Public Use
  Company Number: FR-BAYER-2017-164158

PATIENT
  Age: 28 Year
  Sex: Female

DRUGS (1)
  1. JAYDESS [Suspect]
     Active Substance: LEVONORGESTREL
     Indication: CONTRACEPTION
     Dosage: 14 MCG/24HR, CONT
     Route: 015
     Dates: start: 20160112, end: 20160610

REACTIONS (14)
  - Mood swings [Recovered/Resolved]
  - Loss of consciousness [Recovered/Resolved]
  - Irritability [Recovered/Resolved]
  - Suicidal ideation [Recovered/Resolved]
  - Migraine [Recovered/Resolved]
  - Pain [Recovered/Resolved]
  - Loss of libido [Recovered/Resolved]
  - Uterine contractions abnormal [Recovered/Resolved]
  - Formication [Recovered/Resolved]
  - Fluid retention [Recovered/Resolved]
  - Acne [Recovered/Resolved]
  - Dry eye [Recovered/Resolved]
  - Insomnia [Recovered/Resolved]
  - Weight increased [Recovered/Resolved]

NARRATIVE: CASE EVENT DATE: 20160112
